FAERS Safety Report 5978289-7 (Version None)
Quarter: 2008Q4

REPORT INFORMATION
  Report Type: 
  Country: None (occurrence: None)
  Receive Date: 20081126
  Receipt Date: 20081114
  Transmission Date: 20090506
  Serious: Yes (Other)
  Sender: FDA-Public Use
  Company Number: 2008AL011963

PATIENT
  Age: 67 Year
  Sex: Male

DRUGS (6)
  1. MIRTAZAPINE [Suspect]
     Indication: DEPRESSION
     Dosage: 30 MG; PO
     Route: 048
     Dates: start: 20050801, end: 20080814
  2. ACETYLSALICYLIC ACID SRT [Concomitant]
  3. CODEINE SUL TAB [Concomitant]
  4. ATENOLOL [Concomitant]
  5. ATORVASTATIN CALCIUM [Concomitant]
  6. ACETAMINOPHEN [Concomitant]

REACTIONS (1)
  - SEXUAL DYSFUNCTION [None]
